FAERS Safety Report 23768940 (Version 2)
Quarter: 2024Q2

REPORT INFORMATION
  Report Type: Spontaneous
  Country: CN (occurrence: CN)
  Receive Date: 20240422
  Receipt Date: 20240424
  Transmission Date: 20240716
  Serious: Yes (Life-Threatening, Other)
  Sender: FDA-Public Use
  Company Number: CN-BAYER-2024A059836

PATIENT
  Age: 29 Year
  Sex: Female
  Weight: 68 kg

DRUGS (1)
  1. YAZ [Suspect]
     Active Substance: DROSPIRENONE\ETHINYL ESTRADIOL
     Indication: Endometriosis
     Dosage: 1 DF, QD
     Route: 048
     Dates: start: 20200914, end: 20240414

REACTIONS (11)
  - Pancreatitis acute [Recovering/Resolving]
  - Diabetic ketoacidosis [Recovering/Resolving]
  - Hypertriglyceridaemia [Recovering/Resolving]
  - Hyperkalaemia [None]
  - Metabolic acidosis [None]
  - Hyperventilation [None]
  - Electrolyte imbalance [None]
  - Faeces hard [None]
  - Malnutrition [None]
  - Abdominal pain [Recovered/Resolved]
  - Off label use [None]

NARRATIVE: CASE EVENT DATE: 20200914
